FAERS Safety Report 6239014-8 (Version None)
Quarter: 2009Q2

REPORT INFORMATION
  Report Type: 
  Country: None (occurrence: None)
  Receive Date: 20090622
  Receipt Date: 20090616
  Transmission Date: 20091009
  Serious: Yes (Hospitalization)
  Sender: FDA-Public Use
  Company Number: B0579141A

PATIENT
  Sex: Female

DRUGS (11)
  1. AUGMENTIN '125' [Suspect]
     Indication: PNEUMONIA
     Dosage: 3G PER DAY
     Route: 048
     Dates: start: 20090212, end: 20090213
  2. MUCOMYST [Suspect]
     Indication: PRODUCTIVE COUGH
     Dosage: 200MG THREE TIMES PER DAY
     Route: 048
     Dates: start: 20090212, end: 20090213
  3. COUMADIN [Concomitant]
     Indication: DEEP VEIN THROMBOSIS
     Route: 048
     Dates: start: 20090206, end: 20090213
  4. LAMALINE [Concomitant]
     Indication: PAIN
     Route: 048
     Dates: start: 20090123, end: 20090213
  5. MYOLASTAN [Concomitant]
     Indication: PAIN
     Route: 048
     Dates: start: 20090123, end: 20090213
  6. NOVATREX [Concomitant]
     Indication: RHEUMATOID ARTHRITIS
     Dosage: 15MG WEEKLY
     Route: 048
     Dates: start: 20030101, end: 20090213
  7. CORTANCYL [Concomitant]
     Indication: RHEUMATOID ARTHRITIS
     Dosage: 6MG PER DAY
     Route: 048
     Dates: start: 20010101, end: 20090213
  8. FOSAVANCE [Concomitant]
     Indication: OSTEOPOROSIS
     Dosage: 70MG WEEKLY
     Route: 048
     Dates: start: 20010101
  9. OROCAL D3 [Concomitant]
     Indication: OSTEOPOROSIS
     Dosage: 1UNIT PER DAY
     Route: 048
     Dates: end: 20090213
  10. LANSOPRAZOLE [Concomitant]
     Dosage: 30MG PER DAY
     Route: 048
     Dates: end: 20090213
  11. INNOHEP [Concomitant]
     Indication: DEEP VEIN THROMBOSIS
     Route: 058
     Dates: start: 20090204, end: 20090209

REACTIONS (2)
  - AGRANULOCYTOSIS [None]
  - APLASIA [None]
